FAERS Safety Report 15317575 (Version 3)
Quarter: 2019Q3

REPORT INFORMATION
  Report Type: Report from Study
  Country: US (occurrence: US)
  Receive Date: 20180824
  Receipt Date: 20190730
  Transmission Date: 20191004
  Serious: Yes (Other)
  Sender: FDA-Public Use
  Company Number: US-JAZZ-2016-US-022858

PATIENT
  Sex: Female

DRUGS (67)
  1. VALERIANA OFFICINALIS ROOT [Concomitant]
     Active Substance: VALERIAN
  2. WITHANIA SOMNIFERA [Concomitant]
     Active Substance: HERBALS
  3. MELATONIN [Concomitant]
     Active Substance: MELATONIN
  4. SALMON OIL [Concomitant]
     Active Substance: FISH OIL
  5. DIAZEPAM. [Concomitant]
     Active Substance: DIAZEPAM
  6. XYREM [Suspect]
     Active Substance: SODIUM OXYBATE
     Dosage: 4 G, QD (FIRST DOSE)
     Route: 048
     Dates: start: 201611
  7. COLLAGEN [Concomitant]
     Active Substance: COLLAGEN
  8. ARGININE [Concomitant]
     Active Substance: ARGININE
  9. FOLIC ACID. [Concomitant]
     Active Substance: FOLIC ACID
  10. BIOTIN [Concomitant]
     Active Substance: BIOTIN
  11. VITAMIN D3 [Concomitant]
     Active Substance: CHOLECALCIFEROL
  12. NUCYNTA [Concomitant]
     Active Substance: TAPENTADOL HYDROCHLORIDE
  13. GENISTEIN [Concomitant]
     Active Substance: GENISTEIN
  14. MAGNESIUM [Concomitant]
     Active Substance: MAGNESIUM
  15. DHEA [Concomitant]
     Active Substance: PRASTERONE
  16. ASCORBIC ACID. [Concomitant]
     Active Substance: ASCORBIC ACID
  17. MALIC ACID [Concomitant]
     Active Substance: MALIC ACID
  18. MAGNESIUM CITRATE. [Concomitant]
     Active Substance: MAGNESIUM CITRATE
  19. ARMOUR THYROID [Concomitant]
     Active Substance: THYROID, PORCINE
  20. BENAZEPRIL HCL [Concomitant]
     Active Substance: BENAZEPRIL HYDROCHLORIDE
  21. LAMOTRIGINE. [Concomitant]
     Active Substance: LAMOTRIGINE
  22. OXYCODONE HYDROCHLORIDE. [Concomitant]
     Active Substance: OXYCODONE HYDROCHLORIDE
  23. XYREM [Suspect]
     Active Substance: SODIUM OXYBATE
     Indication: NARCOLEPSY
     Dosage: DOSE ADJUSTMENT
     Dates: start: 200406, end: 2016
  24. LEMON BALM [Concomitant]
  25. RED YEAST RICE [Concomitant]
     Active Substance: DIETARY SUPPLEMENT
  26. AMITIZA [Concomitant]
     Active Substance: LUBIPROSTONE
  27. POTASSIUM GLUCONATE [Concomitant]
     Active Substance: POTASSIUM GLUCONATE
  28. OMEPRAZOLE. [Concomitant]
     Active Substance: OMEPRAZOLE
  29. OXITRIPTAN [Concomitant]
     Active Substance: OXITRIPTAN
  30. CAMELLIA SINENSIS [Concomitant]
     Active Substance: GREEN TEA LEAF
  31. VITAMIN B12 [Concomitant]
     Active Substance: CYANOCOBALAMIN
  32. OXYCONTIN [Concomitant]
     Active Substance: OXYCODONE HYDROCHLORIDE
  33. XYREM [Suspect]
     Active Substance: SODIUM OXYBATE
     Dosage: 3.5 G, BID (SECOND AND THIRD DOSE)
     Route: 048
     Dates: start: 201611
  34. SEROQUEL [Suspect]
     Active Substance: QUETIAPINE FUMARATE
     Indication: PRODUCT USED FOR UNKNOWN INDICATION
  35. FOENICULUM VULGARE [Concomitant]
     Active Substance: FENNEL SEED
  36. MOVANTIK [Concomitant]
     Active Substance: NALOXEGOL OXALATE
  37. CLONIDINE HCL [Concomitant]
     Active Substance: CLONIDINE HYDROCHLORIDE
  38. ALEVE [Concomitant]
     Active Substance: NAPROXEN SODIUM
  39. SILYBUM MARIANUM [Concomitant]
     Active Substance: DIETARY SUPPLEMENT\HERBALS\MILK THISTLE
  40. PABA [Concomitant]
     Active Substance: AMINOBENZOIC ACID
  41. TRIAMTERENE AND HYDROCHLOROTHIAZID [Concomitant]
     Active Substance: HYDROCHLOROTHIAZIDE\TRIAMTERENE
  42. ATORVASTATIN [Concomitant]
     Active Substance: ATORVASTATIN
  43. RITALIN [Concomitant]
     Active Substance: METHYLPHENIDATE HYDROCHLORIDE
  44. SILVER [Concomitant]
     Active Substance: SILVER
  45. GINKGO BILOBA [Concomitant]
     Active Substance: GINKGO
  46. CURCUMA LONGA [Concomitant]
     Active Substance: HERBALS\TURMERIC
  47. SAM-E [Concomitant]
     Active Substance: ADEMETIONINE
  48. VITIS VINIFERA (GRAPE) FLOWER EXTRACT [Concomitant]
     Active Substance: VITIS VINIFERA FLOWERING TOP
  49. SELENIUM [Concomitant]
     Active Substance: SELENIUM
  50. STOOL SOFTENER (DOCUSATE) [Concomitant]
     Active Substance: DOCUSATE
  51. EVENING PRIMROSE [Concomitant]
  52. SYNTHROID [Concomitant]
     Active Substance: LEVOTHYROXINE SODIUM
  53. CLONAZEPAM. [Concomitant]
     Active Substance: CLONAZEPAM
  54. HYDROCHLOROTHIAZIDE. [Concomitant]
     Active Substance: HYDROCHLOROTHIAZIDE
  55. TIZANIDINE HCL [Concomitant]
     Active Substance: TIZANIDINE HYDROCHLORIDE
  56. CYMBALTA [Concomitant]
     Active Substance: DULOXETINE HYDROCHLORIDE
  57. XYREM [Suspect]
     Active Substance: SODIUM OXYBATE
     Indication: FIBROMYALGIA
     Dosage: 1.5 G, BID
     Route: 048
     Dates: start: 200405, end: 2004
  58. BELSOMRA [Concomitant]
     Active Substance: SUVOREXANT
  59. MONOLAURIN [Concomitant]
  60. SORBITOL. [Concomitant]
     Active Substance: SORBITOL
  61. MSM [Concomitant]
     Active Substance: DIMETHYL SULFONE
  62. GLUTAMIC ACID [Concomitant]
     Active Substance: GLUTAMIC ACID
  63. COENZYME Q10 [Concomitant]
     Active Substance: UBIDECARENONE
  64. ACETYLSALICYLIC ACID [Concomitant]
     Active Substance: ASPIRIN
  65. FLAXSEED [Concomitant]
     Active Substance: FLAX SEED
  66. LACTULOSE. [Concomitant]
     Active Substance: LACTULOSE
  67. BIFIDOBACTERIUM LACTIS [Concomitant]
     Active Substance: BIFIDOBACTERIUM ANIMALIS LACTIS

REACTIONS (9)
  - Weight increased [Recovering/Resolving]
  - Intentional product misuse [Unknown]
  - Complex regional pain syndrome [Unknown]
  - Initial insomnia [Unknown]
  - Blood pressure abnormal [Recovering/Resolving]
  - Gastric ulcer haemorrhage [Unknown]
  - Osteoarthritis [Unknown]
  - Restless legs syndrome [Recovering/Resolving]
  - Anaemia [Not Recovered/Not Resolved]

NARRATIVE: CASE EVENT DATE: 2018
